FAERS Safety Report 4706650-7 (Version None)
Quarter: 2005Q3

REPORT INFORMATION
  Report Type: 
  Country: None (occurrence: None)
  Receive Date: 20050705
  Receipt Date: 20050620
  Transmission Date: 20060218
  Serious: Yes (Other)
  Sender: FDA-Public Use
  Company Number: US-ROCHE-408470

PATIENT
  Age: 22 Year
  Sex: Male
  Weight: 81.6 kg

DRUGS (4)
  1. KLONOPIN [Suspect]
     Indication: DRUG USE FOR UNKNOWN INDICATION
     Route: 048
  2. MARIJUANA [Interacting]
     Indication: DRUG USE FOR UNKNOWN INDICATION
     Route: 065
  3. COCAINE [Interacting]
     Indication: DRUG USE FOR UNKNOWN INDICATION
     Route: 065
  4. ALCOHOL [Concomitant]

REACTIONS (4)
  - DRUG ABUSER [None]
  - DRUG INTERACTION [None]
  - MURDER [None]
  - SELF-MEDICATION [None]
